FAERS Safety Report 5473118-2 (Version None)
Quarter: 2007Q4

REPORT INFORMATION
  Report Type: 
  Country: None (occurrence: None)
  Receive Date: 20071001
  Receipt Date: 20070925
  Transmission Date: 20080405
  Serious: Yes (Death, Hospitalization)
  Sender: FDA-Public Use
  Company Number: FR-BRISTOL-MYERS SQUIBB COMPANY-13919253

PATIENT
  Age: 63 Year
  Sex: Male

DRUGS (6)
  1. REYATAZ [Suspect]
     Dates: start: 20070515
  2. INEXIUM [Suspect]
  3. TRIFLUCAN [Suspect]
  4. DEPAKENE [Concomitant]
     Indication: EPILEPSY
  5. SEROPRAM [Concomitant]
     Indication: DEPRESSION
  6. BACTRIM DS [Concomitant]

REACTIONS (6)
  - CULTURE URINE POSITIVE [None]
  - DEATH [None]
  - DYSURIA [None]
  - HAEMATURIA [None]
  - HYPERCALCIURIA [None]
  - HYPERCREATININAEMIA [None]
